FAERS Safety Report 11980146 (Version 1)
Quarter: 2016Q1

REPORT INFORMATION
  Report Type: Report from Study
  Country: US (occurrence: US)
  Receive Date: 20160129
  Receipt Date: 20160129
  Transmission Date: 20160526
  Serious: Yes (Other)
  Sender: FDA-Public Use
  Company Number: US-ABBVIE-15K-163-1406769-00

PATIENT
  Age: 47 Year
  Sex: Female

DRUGS (3)
  1. IMURAN [Concomitant]
     Active Substance: AZATHIOPRINE
     Indication: PRODUCT USED FOR UNKNOWN INDICATION
     Dosage: FOUR AND HALF PILLS
     Route: 048
  2. HUMIRA [Suspect]
     Active Substance: ADALIMUMAB
     Route: 065
     Dates: start: 201501, end: 20150523
  3. HUMIRA [Suspect]
     Active Substance: ADALIMUMAB
     Indication: CROHN^S DISEASE
     Route: 065
     Dates: start: 2008, end: 201005

REACTIONS (11)
  - Stricturoplasty [Recovered/Resolved]
  - Presyncope [Recovered/Resolved]
  - Flatulence [Unknown]
  - Pallor [Recovered/Resolved]
  - Anaemia [Unknown]
  - White blood cell count abnormal [Unknown]
  - Drug ineffective [Unknown]
  - Feeling abnormal [Unknown]
  - Nausea [Unknown]
  - Drug effect incomplete [Unknown]
  - Constipation [Recovering/Resolving]

NARRATIVE: CASE EVENT DATE: 2015
